FAERS Safety Report 10512708 (Version 5)
Quarter: 2015Q1

REPORT INFORMATION
  Report Type: Report from Study
  Country: US (occurrence: US)
  Receive Date: 20141012
  Receipt Date: 20150105
  Transmission Date: 20150720
  Serious: Yes (Life-Threatening, Hospitalization, Other)
  Sender: FDA-Public Use
  Company Number: US-MYLANLABS-2014SP005367

PATIENT
  Age: 83 Year
  Sex: Male

DRUGS (14)
  1. CYTARABINE. [Suspect]
     Active Substance: CYTARABINE
     Indication: MYELODYSPLASTIC SYNDROME
  2. VFEND [Concomitant]
     Active Substance: VORICONAZOLE
     Route: 042
     Dates: start: 20140909, end: 20140909
  3. CYTARABINE. [Suspect]
     Active Substance: CYTARABINE
     Indication: ACUTE MYELOID LEUKAEMIA
  4. AK-DILATE [Concomitant]
     Indication: PUPIL DILATION PROCEDURE
     Route: 047
     Dates: start: 20140911
  5. LIDODERM [Concomitant]
     Active Substance: LIDOCAINE
     Indication: PAIN
     Route: 062
     Dates: start: 20140907, end: 20140915
  6. MUCINEX [Concomitant]
     Active Substance: GUAIFENESIN
     Indication: PRODUCT USED FOR UNKNOWN INDICATION
     Dates: start: 20140905, end: 20140915
  7. DIFLUCAN [Concomitant]
     Active Substance: FLUCONAZOLE
     Indication: ANTIFUNGAL TREATMENT
  8. MYDRIACYL [Concomitant]
     Active Substance: TROPICAMIDE
     Indication: PUPIL DILATION PROCEDURE
     Route: 047
     Dates: start: 20140911
  9. VFEND [Concomitant]
     Active Substance: VORICONAZOLE
     Route: 048
     Dates: start: 20140909, end: 20140909
  10. CYTARABINE. [Suspect]
     Active Substance: CYTARABINE
     Dosage: 20 MG, BID
     Route: 058
     Dates: start: 20140825
  11. VFEND [Concomitant]
     Active Substance: VORICONAZOLE
     Indication: ANTIFUNGAL TREATMENT
  12. DIFLUCAN [Concomitant]
     Active Substance: FLUCONAZOLE
     Route: 048
     Dates: start: 20140912
  13. DIFLUCAN [Concomitant]
     Active Substance: FLUCONAZOLE
     Route: 042
     Dates: start: 20140910, end: 20140912
  14. MERREM [Concomitant]
     Active Substance: MEROPENEM
     Indication: FEBRILE NEUTROPENIA
     Dates: start: 20140903, end: 20140910

REACTIONS (11)
  - Cardiac failure congestive [Not Recovered/Not Resolved]
  - Cardiac arrest [Recovered/Resolved]
  - Atrial fibrillation [Not Recovered/Not Resolved]
  - Pleural effusion [Recovering/Resolving]
  - Acute respiratory distress syndrome [Recovered/Resolved]
  - Hypertension [Recovering/Resolving]
  - Cyanosis [Recovering/Resolving]
  - Hypoxia [Recovering/Resolving]
  - Wheezing [Recovering/Resolving]
  - Systemic candida [Recovered/Resolved]
  - Neutropenia [Not Recovered/Not Resolved]

NARRATIVE: CASE EVENT DATE: 20140907
